FAERS Safety Report 6699425-3 (Version None)
Quarter: 2010Q2

REPORT INFORMATION
  Report Type: 
  Country: None (occurrence: None)
  Receive Date: 20100426
  Receipt Date: 20100412
  Transmission Date: 20101027
  Serious: Yes (Hospitalization, Other)
  Sender: FDA-Public Use
  Company Number: 231947J10USA

PATIENT
  Age: 69 Year
  Sex: Female

DRUGS (6)
  1. REBIF [Suspect]
     Indication: MULTIPLE SCLEROSIS
     Dosage: 44 MCG, 3 IN 1 WK, SUBCUTANEOUS
     Route: 058
     Dates: start: 20030106, end: 20100405
  2. ACTONEL [Concomitant]
  3. CARDURA [Concomitant]
  4. LOPRESSOR [Concomitant]
  5. SYNTHROID [Concomitant]
  6. ZOCOR [Concomitant]

REACTIONS (8)
  - COLONIC OBSTRUCTION [None]
  - COLONIC POLYP [None]
  - DIVERTICULAR PERFORATION [None]
  - DIVERTICULITIS [None]
  - HYPERTENSION [None]
  - IATROGENIC INJURY [None]
  - LARGE INTESTINE PERFORATION [None]
  - PRECANCEROUS CELLS PRESENT [None]
